FAERS Safety Report 5282962-6 (Version None)
Quarter: 2007Q1

REPORT INFORMATION
  Report Type: 
  Country: None (occurrence: None)
  Receive Date: 20070327
  Receipt Date: 20070316
  Transmission Date: 20070707
  Serious: Yes (Hospitalization)
  Sender: FDA-Public Use
  Company Number: GXKR2007SK02629

PATIENT
  Age: 50 Year
  Sex: Female

DRUGS (2)
  1. AMOXICILLIN TRIHYDRATE [Suspect]
     Indication: TONSILLITIS
     Dosage: 1000 MG, TID, ORAL
     Route: 048
     Dates: start: 20060915, end: 20060919
  2. AUGMENTIN '125' [Suspect]
     Indication: TONSILLITIS
     Dosage: 375, MG, TID, ORAL
     Route: 048
     Dates: start: 20060919, end: 20060922

REACTIONS (2)
  - ANGIOEDEMA [None]
  - URTICARIA [None]
